FAERS Safety Report 22028077 (Version 1)
Quarter: 2023Q1

REPORT INFORMATION
  Report Type: Spontaneous
  Country: US (occurrence: None)
  Receive Date: 20230223
  Receipt Date: 20230223
  Transmission Date: 20230418
  Serious: No
  Sender: FDA-Public Use
  Company Number: US-ROCHE-3020007

PATIENT
  Age: 12 Year
  Sex: Female
  Weight: 36.320 kg

DRUGS (2)
  1. NUTROPIN [Suspect]
     Active Substance: SOMATROPIN
     Indication: Product used for unknown indication
     Dosage: NUTROPIN AQ NUSPIN 10 PEN DAILY
     Route: 058
     Dates: start: 20210203
  2. NUTROPIN [Suspect]
     Active Substance: SOMATROPIN

REACTIONS (8)
  - Device malfunction [Unknown]
  - Product dose omission issue [Unknown]
  - Incorrect dose administered [Unknown]
  - Drug delivery system malfunction [Unknown]
  - Device mechanical issue [Unknown]
  - Device defective [Unknown]
  - Underdose [Unknown]
  - Device issue [Unknown]

NARRATIVE: CASE EVENT DATE: 20220203
